FAERS Safety Report 4664228-8 (Version None)
Quarter: 2005Q2

REPORT INFORMATION
  Report Type: 
  Country: None (occurrence: None)
  Receive Date: 20050516
  Receipt Date: 20050502
  Transmission Date: 20051028
  Serious: Yes (Life-Threatening, Hospitalization, Other)
  Sender: FDA-Public Use
  Company Number: 2005049930

PATIENT
  Age: 75 Year
  Sex: Female
  Weight: 90 kg

DRUGS (7)
  1. FRAGMIN [Suspect]
     Indication: FEMORAL NECK FRACTURE
     Dosage: 5000 I.U. (5000 O.U., 1 IN 1 D), SUBCUTANEOUS
     Route: 058
     Dates: start: 20050224, end: 20050317
  2. ACENOCOUMAROL (ACENOCOUMAROL) [Concomitant]
  3. POTASSIUM CHLORIDE [Concomitant]
  4. PARACETAMOL (PARACETAMOL) [Concomitant]
  5. RABEPRAZOLE SODIUM [Concomitant]
  6. PARAFFIN, LIQUID (PARAFFIN, LIQUID) [Concomitant]
  7. APOREX (DEXTROPROPOXYPHENE HYDROCHLORIDE, PARACETAMOL) [Concomitant]

REACTIONS (7)
  - CULTURE POSITIVE [None]
  - DRUG INEFFECTIVE [None]
  - ESCHERICHIA INFECTION [None]
  - HYPOXIA [None]
  - PHARMACEUTICAL PRODUCT COMPLAINT [None]
  - PULMONARY EMBOLISM [None]
  - THROMBOPHLEBITIS SUPERFICIAL [None]
